FAERS Safety Report 15009846 (Version 1)
Quarter: 2018Q2

REPORT INFORMATION
  Report Type: Spontaneous
  Country: US (occurrence: US)
  Receive Date: 20180614
  Receipt Date: 20180614
  Transmission Date: 20180711
  Serious: Yes (Death, Hospitalization)
  Sender: FDA-Public Use
  Company Number: US-VIVIMED-2018SP004536

PATIENT

DRUGS (1)
  1. AMLODIPINE [Suspect]
     Active Substance: AMLODIPINE BESYLATE
     Indication: HYPERTENSION
     Dosage: UNK, 50 10-MG TABLETS, TOTAL 500 MG
     Route: 065

REACTIONS (11)
  - Acidosis [Unknown]
  - Haemodynamic instability [Unknown]
  - Multiple organ dysfunction syndrome [Unknown]
  - Intentional overdose [Fatal]
  - Hypotension [Unknown]
  - Cardiovascular disorder [Unknown]
  - Pulmonary oedema [Unknown]
  - Suicide attempt [Fatal]
  - Electrolyte imbalance [Unknown]
  - Peripheral ischaemia [Unknown]
  - Toxicity to various agents [Unknown]
